FAERS Safety Report 4378462-8 (Version None)
Quarter: 2004Q2

REPORT INFORMATION
  Report Type: 
  Country: None (occurrence: None)
  Receive Date: 20040609
  Receipt Date: 20040528
  Transmission Date: 20050107
  Serious: Yes (Hospitalization)
  Sender: FDA-Public Use
  Company Number: 03P-163-0244259-00

PATIENT
  Age: 72 Year
  Sex: Female
  Weight: 74.3899 kg

DRUGS (21)
  1. HUMIRA [Suspect]
     Indication: RHEUMATOID ARTHRITIS
     Dosage: 40 MG, 1 IN 2 WK, SUBCUTANEOUS
     Route: 058
     Dates: start: 20030901, end: 20040401
  2. FLU-SHOT [Concomitant]
  3. ASPIRIN [Concomitant]
  4. METHOTREXATE [Concomitant]
  5. ARTHROTEC [Concomitant]
  6. GUANFACINE HYDROCHLORIDE [Concomitant]
  7. VALSARTAN [Concomitant]
  8. FUROSEMIDE [Concomitant]
  9. BETAXOLOL [Concomitant]
  10. ISOSORBIDE MONONITRATE [Concomitant]
  11. FEXOFENADINE HYDROCHLORIDE [Concomitant]
  12. ATORVASTATIN CALCIUM [Concomitant]
  13. MULTI-VITAMINS [Concomitant]
  14. TOCOPHEROL CONCENTRATE CAP [Concomitant]
  15. CALCIUM [Concomitant]
  16. METOPROLOL TARTRATE [Concomitant]
  17. PANTOPRAZOLE [Concomitant]
  18. MULTIVITAMIN [Concomitant]
  19. PREDNISONE [Concomitant]
  20. PROPACET 100 [Concomitant]
  21. ACETAMINOPHEN [Concomitant]

REACTIONS (7)
  - BRONCHITIS [None]
  - CYSTITIS [None]
  - DIZZINESS [None]
  - DYSPNOEA [None]
  - SINUSITIS [None]
  - SYNCOPE VASOVAGAL [None]
  - VOMITING [None]
